FAERS Safety Report 4494199-9 (Version None)
Quarter: 2004Q4

REPORT INFORMATION
  Report Type: 
  Country: None (occurrence: None)
  Receive Date: 20041105
  Receipt Date: 20041102
  Transmission Date: 20050328
  Serious: Yes (Hospitalization)
  Sender: FDA-Public Use
  Company Number: TR-ROCHE-384924

PATIENT
  Age: 35 Year
  Sex: Male
  Weight: 64 kg

DRUGS (8)
  1. DACLIZUMAB [Suspect]
     Route: 042
     Dates: start: 20041021
  2. MYCOPHENOLATE MOFETIL [Suspect]
     Route: 048
     Dates: start: 20041020, end: 20041101
  3. TACROLIMUS [Suspect]
     Route: 048
     Dates: start: 20041020
  4. METHYLPREDNISOLONE [Suspect]
     Route: 048
     Dates: start: 20041020
  5. ACYCLOVIR [Concomitant]
     Route: 048
     Dates: start: 20041020
  6. TRIMETHOPRIM + SULFAMETHOXAZOLE [Concomitant]
     Route: 048
     Dates: start: 20041020
  7. FLUCONAZOLE [Concomitant]
     Route: 048
     Dates: start: 20041020
  8. LANSOPRAZOLE [Concomitant]
     Route: 048
     Dates: start: 20041020

REACTIONS (7)
  - ABDOMINAL PAIN [None]
  - ABDOMINAL RIGIDITY [None]
  - ABDOMINAL TENDERNESS [None]
  - ASCITES [None]
  - PERITONITIS [None]
  - RENAL TRANSPLANT [None]
  - WHITE BLOOD CELL COUNT INCREASED [None]
